FAERS Safety Report 13913855 (Version 1)
Quarter: 2017Q3

REPORT INFORMATION
  Report Type: Spontaneous
  Country: US (occurrence: US)
  Receive Date: 20170829
  Receipt Date: 20170829
  Transmission Date: 20171127
  Serious: Yes (Other)
  Sender: FDA-Public Use
  Company Number: US-PFIZER INC-2017365192

PATIENT
  Age: 60 Year
  Sex: Female

DRUGS (1)
  1. METHOTREXATE SODIUM. [Suspect]
     Active Substance: METHOTREXATE SODIUM
     Dosage: 20 MG, WEEKLY

REACTIONS (14)
  - High density lipoprotein increased [Unknown]
  - Low density lipoprotein increased [Unknown]
  - Monocyte count increased [Unknown]
  - Red blood cell sedimentation rate increased [Unknown]
  - Mouth ulceration [Unknown]
  - Blood cholesterol increased [Unknown]
  - C-reactive protein increased [Unknown]
  - Synovitis [Unknown]
  - Joint crepitation [Unknown]
  - Ligament laxity [Unknown]
  - Arthralgia [Unknown]
  - Glomerular filtration rate decreased [Unknown]
  - Joint swelling [Unknown]
  - Red cell distribution width increased [Unknown]
